FAERS Safety Report 13098317 (Version 15)
Quarter: 2023Q4

REPORT INFORMATION
  Report Type: Spontaneous
  Country: US (occurrence: US)
  Receive Date: 20170109
  Receipt Date: 20231204
  Transmission Date: 20240110
  Serious: Yes (Disabling)
  Sender: FDA-Public Use
  Company Number: US-PFIZER INC-2017007900

PATIENT
  Age: 17 Year
  Sex: Male

DRUGS (4)
  1. PRISTIQ EXTENDED-RELEASE [Suspect]
     Active Substance: DESVENLAFAXINE SUCCINATE
     Indication: Anxiety
     Dosage: 75 MG, DAILY (50MG IN THE MORNING AND 25MG AT NIGHT/25MG IN THE MORNING AND 50MG IN NIGHT)
  2. PRISTIQ EXTENDED-RELEASE [Suspect]
     Active Substance: DESVENLAFAXINE SUCCINATE
     Dosage: 75 MG, 2X/DAY (25MG AND 50MG) TWICE A DAY)
  3. PRISTIQ EXTENDED-RELEASE [Suspect]
     Active Substance: DESVENLAFAXINE SUCCINATE
     Dosage: 25 MG
  4. PRISTIQ EXTENDED-RELEASE [Suspect]
     Active Substance: DESVENLAFAXINE SUCCINATE
     Dosage: 50 MG, 2X/DAY (TAKES 2 PILLS PER DAY ONE IN THE MORNING ONE IN THE EVENING)
     Route: 048

REACTIONS (6)
  - Loss of personal independence in daily activities [Unknown]
  - Migraine [Unknown]
  - Illness [Unknown]
  - New daily persistent headache [Unknown]
  - Off label use [Unknown]
  - Off label use [Unknown]
